FAERS Safety Report 9354203 (Version 4)
Quarter: 2013Q3

REPORT INFORMATION
  Report Type: Report from Study
  Country: US (occurrence: US)
  Receive Date: 20130618
  Receipt Date: 20130930
  Transmission Date: 20140515
  Serious: Yes (Hospitalization)
  Sender: FDA-Public Use
  Company Number: US-GLAXOSMITHKLINE-Z0018065C

PATIENT
  Age: 71 Year
  Sex: Female
  Weight: 85.5 kg

DRUGS (16)
  1. TRAMETINIB [Suspect]
     Indication: MALIGNANT MELANOMA
     Dosage: 2MG PER DAY
     Route: 048
     Dates: start: 20121203
  2. DABRAFENIB [Suspect]
     Indication: MALIGNANT MELANOMA
     Dosage: 150MG TWICE PER DAY
     Route: 048
     Dates: start: 20121203
  3. ENOXAPARIN [Concomitant]
     Indication: THROMBOSIS PROPHYLAXIS
     Dosage: 40MG FOUR TIMES PER DAY
     Route: 058
     Dates: start: 20130615, end: 20130621
  4. POTASSIUM CHLORIDE [Concomitant]
     Indication: HYPOKALAEMIA
     Dosage: 30MEQ FOUR TIMES PER DAY
     Route: 048
     Dates: start: 20130615, end: 20130820
  5. GUAIFENESIN [Concomitant]
     Indication: ILL-DEFINED DISORDER
     Dosage: 10ML AS REQUIRED
     Route: 048
     Dates: start: 20130615, end: 20130621
  6. ALBUTEROL [Concomitant]
     Indication: WHEEZING
     Dosage: 3ML AS REQUIRED
     Route: 055
     Dates: start: 2009
  7. VITAMIN C [Concomitant]
     Indication: MEDICAL DIET
     Dosage: 500MG FOUR TIMES PER DAY
     Route: 048
     Dates: end: 20130723
  8. ASCORBIC ACID [Concomitant]
     Indication: MEDICAL DIET
     Dosage: 500MG FOUR TIMES PER DAY
     Route: 048
     Dates: start: 20090702, end: 20130723
  9. CHOLECALCIFEROL [Concomitant]
     Indication: MEDICAL DIET
     Dosage: 1000IU FOUR TIMES PER DAY
     Route: 048
     Dates: start: 20090717, end: 20130723
  10. LEVOTHYROXINE [Concomitant]
     Indication: HYPOTHYROIDISM
     Dosage: 50MCG FOUR TIMES PER DAY
     Route: 048
     Dates: start: 2010
  11. NEXIUM [Concomitant]
     Indication: GASTROOESOPHAGEAL REFLUX DISEASE
     Dosage: 20MG FOUR TIMES PER DAY
     Route: 048
     Dates: start: 20101207
  12. FLUTICASONE [Concomitant]
     Indication: ILL-DEFINED DISORDER
     Dosage: 50MCG FOUR TIMES PER DAY
     Route: 055
     Dates: start: 20111213
  13. TOCOPHEROL [Concomitant]
     Indication: MEDICAL DIET
     Dosage: 400IU FOUR TIMES PER DAY
     Route: 048
     Dates: start: 20091026, end: 20130723
  14. TRAMADOL HCL [Concomitant]
     Indication: PAIN
     Dosage: 50MG AS REQUIRED
     Route: 048
     Dates: start: 20121210
  15. ASPIRIN [Concomitant]
     Indication: PROPHYLAXIS
     Dosage: 81MG FOUR TIMES PER DAY
     Route: 048
     Dates: start: 20090702, end: 20130724
  16. UNKNOWN MEDICATION [Concomitant]
     Indication: WHEEZING
     Dosage: 1PUFF AS REQUIRED
     Route: 055
     Dates: start: 20130615, end: 20130621

REACTIONS (2)
  - Enterocolitis infectious [Recovered/Resolved]
  - Urinary tract infection [Recovered/Resolved]
